FAERS Safety Report 18305783 (Version 1)
Quarter: 2020Q3

REPORT INFORMATION
  Report Type: Spontaneous
  Country: AF (occurrence: AF)
  Receive Date: 20200923
  Receipt Date: 20200923
  Transmission Date: 20201103
  Serious: Yes (Other)
  Sender: FDA-Public Use
  Company Number: None

PATIENT
  Age: 38 Year
  Sex: Female

DRUGS (4)
  1. CIMZIA [Suspect]
     Active Substance: CERTOLIZUMAB PEGOL
     Indication: ANKYLOSING SPONDYLITIS
     Dosage: ?          OTHER FREQUENCY:EVERY 4 WEEKS;?
     Route: 058
     Dates: start: 20200330
  2. PREDNISOLONE. [Concomitant]
     Active Substance: PREDNISOLONE
  3. DORZOL/TIMOL [Concomitant]
  4. METRONIDAZOL [Concomitant]
     Active Substance: METRONIDAZOLE

REACTIONS (1)
  - Maternal exposure during pregnancy [None]
